FAERS Safety Report 16117110 (Version 1)
Quarter: 2019Q1

REPORT INFORMATION
  Report Type: Spontaneous
  Country: US (occurrence: US)
  Receive Date: 20190221
  Receipt Date: 20190221
  Transmission Date: 20190418
  Serious: No
  Sender: FDA-Public Use
  Company Number: None

PATIENT
  Age: 74 Year
  Sex: Female
  Weight: 50.8 kg

DRUGS (4)
  1. REPATHA [Suspect]
     Active Substance: EVOLOCUMAB
     Indication: CEREBRAL ARTERY OCCLUSION
     Dosage: ?          OTHER FREQUENCY:EVERY 2 WEEKS; AS DIRECTED?
     Route: 058
     Dates: start: 201807
  2. REPATHA [Suspect]
     Active Substance: EVOLOCUMAB
     Indication: ARTERIOSCLEROSIS
     Dosage: ?          OTHER FREQUENCY:EVERY 2 WEEKS; AS DIRECTED?
     Route: 058
     Dates: start: 201807
  3. REPATHA [Suspect]
     Active Substance: EVOLOCUMAB
     Indication: OBESITY
     Dosage: ?          OTHER FREQUENCY:EVERY 2 WEEKS; AS DIRECTED?
     Route: 058
     Dates: start: 201807
  4. REPATHA [Suspect]
     Active Substance: EVOLOCUMAB
     Indication: TYPE IIA HYPERLIPIDAEMIA
     Dosage: ?          OTHER FREQUENCY:EVERY 2 WEEKS; AS DIRECTED?
     Route: 058
     Dates: start: 201807

REACTIONS (3)
  - Rhinorrhoea [None]
  - Musculoskeletal chest pain [None]
  - Bone pain [None]
